FAERS Safety Report 4792434-0 (Version None)
Quarter: 2005Q4

REPORT INFORMATION
  Report Type: 
  Country: None (occurrence: None)
  Receive Date: 20051010
  Receipt Date: 20050211
  Transmission Date: 20060501
  Serious: No
  Sender: FDA-Public Use
  Company Number: US-GLAXOSMITHKLINE-A0545175A

PATIENT
  Age: 64 Year
  Sex: Female

DRUGS (11)
  1. LANOXIN [Suspect]
     Indication: ATRIAL FIBRILLATION
     Route: 048
     Dates: start: 20040101, end: 20040101
  2. ALLEGRA [Concomitant]
  3. NEXIUM [Concomitant]
  4. ASPIRIN [Concomitant]
  5. ESTROLOGIC [Concomitant]
  6. BEXTRA [Concomitant]
  7. FOLTX [Concomitant]
  8. LIPITOR [Concomitant]
  9. METOPROLOL [Concomitant]
  10. ZETIA [Concomitant]
  11. FOLIC ACID [Concomitant]

REACTIONS (2)
  - ALOPECIA [None]
  - HAIR TEXTURE ABNORMAL [None]
